FAERS Safety Report 10432491 (Version 1)
Quarter: 2014Q3

REPORT INFORMATION
  Report Type: Spontaneous
  Country: US (occurrence: None)
  Receive Date: 20140904
  Receipt Date: 20140904
  Transmission Date: 20150326
  Serious: Yes (Hospitalization)
  Sender: FDA-Public Use
  Company Number: None

PATIENT
  Age: 3 Year
  Sex: Male
  Weight: 13.97 kg

DRUGS (1)
  1. DIVALPROEX SODIUM. [Suspect]
     Active Substance: DIVALPROEX SODIUM
     Indication: EPILEPSY
     Dosage: THERAPY?6/9-8/1
     Route: 048

REACTIONS (6)
  - Product substitution issue [None]
  - Convulsion [None]
  - Sleep disorder [None]
  - Personality disorder [None]
  - Therapeutic response changed [None]
  - Appetite disorder [None]
